FAERS Safety Report 11529096 (Version 1)
Quarter: 2015Q3

REPORT INFORMATION
  Report Type: Report from Study
  Country: US (occurrence: US)
  Receive Date: 20150921
  Receipt Date: 20150921
  Transmission Date: 20151125
  Serious: No
  Sender: FDA-Public Use
  Company Number: US-AMGEN-USASP2015095854

PATIENT
  Sex: Female

DRUGS (1)
  1. ENBREL [Suspect]
     Active Substance: ETANERCEPT
     Indication: PRODUCT USED FOR UNKNOWN INDICATION
     Dosage: UNK UNK, 2 TIMES/WK
     Route: 065

REACTIONS (11)
  - Obesity [Unknown]
  - Injection site swelling [Unknown]
  - Injection site warmth [Unknown]
  - Incorrect product storage [Unknown]
  - Injection site pruritus [Unknown]
  - Injection site pain [Unknown]
  - Injection site erythema [Unknown]
  - Impaired healing [Unknown]
  - Injection site inflammation [Unknown]
  - Skin injury [Unknown]
  - Device issue [Unknown]
